FAERS Safety Report 7167157-3 (Version None)
Quarter: 2010Q4

REPORT INFORMATION
  Report Type: 
  Country: None (occurrence: None)
  Receive Date: 20101213
  Receipt Date: 20101213
  Transmission Date: 20110411
  Serious: Yes (Hospitalization, Other)
  Sender: FDA-Public Use
  Company Number: None

PATIENT
  Age: 25 Year
  Sex: Female
  Weight: 58.9676 kg

DRUGS (1)
  1. SYNTHROID [Suspect]
     Indication: THYROID DISORDER
     Dosage: 1 TABLET DAILY
     Dates: start: 20101114, end: 20101208

REACTIONS (8)
  - ANXIETY [None]
  - DIZZINESS [None]
  - HYPERACUSIS [None]
  - HYPERAESTHESIA [None]
  - NAUSEA [None]
  - PANIC DISORDER [None]
  - TREMOR [None]
  - WEIGHT INCREASED [None]
